FAERS Safety Report 12413339 (Version 2)
Quarter: 2016Q2

REPORT INFORMATION
  Report Type: Spontaneous
  Country: IT (occurrence: IT)
  Receive Date: 20160527
  Receipt Date: 20160621
  Transmission Date: 20160815
  Serious: Yes (Hospitalization)
  Sender: FDA-Public Use
  Company Number: IT-JNJFOC-20160523930

PATIENT
  Age: 30 Year
  Sex: Female

DRUGS (3)
  1. METOCLOPRAMIDE. [Suspect]
     Active Substance: METOCLOPRAMIDE
     Indication: NAUSEA
     Route: 065
     Dates: start: 20160308, end: 20160314
  2. PATROL [Suspect]
     Active Substance: ACETAMINOPHEN\TRAMADOL HYDROCHLORIDE
     Indication: HEADACHE
     Dosage: POSSIBLY ALSO 14-MAR-2016 WAS MEANT
     Route: 048
     Dates: start: 20160308, end: 20160314
  3. SUMATRIPTAN. [Suspect]
     Active Substance: SUMATRIPTAN
     Indication: HEADACHE
     Route: 065
     Dates: start: 20160308, end: 20160314

REACTIONS (8)
  - Paradoxical drug reaction [Recovering/Resolving]
  - Vertigo [Recovering/Resolving]
  - Lethargy [Recovering/Resolving]
  - Diet refusal [Recovering/Resolving]
  - Neck pain [Recovering/Resolving]
  - Headache [Recovering/Resolving]
  - Psychomotor hyperactivity [Recovering/Resolving]
  - Musculoskeletal pain [Recovering/Resolving]

NARRATIVE: CASE EVENT DATE: 20160311
